FAERS Safety Report 24678480 (Version 1)
Quarter: 2024Q4

REPORT INFORMATION
  Report Type: Spontaneous
  Country: US (occurrence: US)
  Receive Date: 20241129
  Receipt Date: 20241129
  Transmission Date: 20250115
  Serious: Yes (Hospitalization, Other)
  Sender: AMNEAL
  Company Number: US-AMNEAL PHARMACEUTICALS-2024-AMRX-04299

PATIENT
  Age: 79 Year
  Sex: Male

DRUGS (1)
  1. METFORMIN HYDROCHLORIDE [Suspect]
     Active Substance: METFORMIN HYDROCHLORIDE
     Indication: Diabetes mellitus
     Dosage: UNK
     Route: 065

REACTIONS (9)
  - Haemophagocytic lymphohistiocytosis [Unknown]
  - Parvovirus B19 infection [Unknown]
  - Urine output decreased [Unknown]
  - Hypertransaminasaemia [Unknown]
  - Blood lactate dehydrogenase increased [Unknown]
  - Haptoglobin decreased [Unknown]
  - Toxicity to various agents [Unknown]
  - Lactic acidosis [Recovering/Resolving]
  - Septic shock [Unknown]
